FAERS Safety Report 8232970-8 (Version None)
Quarter: 2012Q1

REPORT INFORMATION
  Report Type: 
  Country: None (occurrence: None)
  Receive Date: 20120326
  Receipt Date: 20111223
  Transmission Date: 20120608
  Serious: Yes (Hospitalization)
  Sender: FDA-Public Use
  Company Number: CO-AMGEN-COLSP2011070065

PATIENT
  Sex: Female

DRUGS (1)
  1. NEULASTIM [Suspect]
     Indication: FEBRILE NEUTROPENIA
     Dosage: 6 MG, QMO
     Route: 058
     Dates: start: 20111104

REACTIONS (1)
  - SALMONELLOSIS [None]
